FAERS Safety Report 8397972-X (Version None)
Quarter: 2012Q2

REPORT INFORMATION
  Report Type: 
  Country: None (occurrence: None)
  Receive Date: 20120524
  Receipt Date: 20120510
  Transmission Date: 20120825
  Serious: Yes (Other)
  Sender: FDA-Public Use
  Company Number: EU-2012-10145

PATIENT
  Sex: Female
  Weight: 51 kg

DRUGS (2)
  1. SAMSCA [Suspect]
     Indication: INAPPROPRIATE ANTIDIURETIC HORMONE SECRETION
     Dosage: 15 MG MILLIGRAM(S), ORAL
     Route: 048
     Dates: start: 20120423, end: 20120423
  2. SALINE (SALINE) [Concomitant]

REACTIONS (2)
  - BLOOD SODIUM DECREASED [None]
  - RAPID CORRECTION OF HYPONATRAEMIA [None]
